FAERS Safety Report 21759985 (Version 1)
Quarter: 2022Q4

REPORT INFORMATION
  Report Type: Spontaneous
  Country: IE (occurrence: IE)
  Receive Date: 20221221
  Receipt Date: 20221221
  Transmission Date: 20230112
  Serious: Yes (Hospitalization)
  Sender: FDA-Public Use
  Company Number: IE-Accord-289618

PATIENT
  Age: 46 Year
  Sex: Female

DRUGS (1)
  1. PEGFILGRASTIM [Suspect]
     Active Substance: PEGFILGRASTIM
     Indication: Product used for unknown indication
     Dosage: UNK (DOSE: 6MG/0.6ML, PRE-FILLED SYRINGE PELGRAZ)
     Route: 058
     Dates: start: 20221115

REACTIONS (1)
  - Infection [Unknown]

NARRATIVE: CASE EVENT DATE: 20221121
